FAERS Safety Report 6095561-3 (Version None)
Quarter: 2009Q1

REPORT INFORMATION
  Report Type: 
  Country: None (occurrence: None)
  Receive Date: 20090227
  Receipt Date: 20080425
  Transmission Date: 20090719
  Serious: No
  Sender: FDA-Public Use
  Company Number: A0724842A

PATIENT
  Age: 22 Year
  Sex: Female

DRUGS (2)
  1. LAMICTAL [Suspect]
     Indication: BIPOLAR DISORDER
     Dosage: 100MG PER DAY
     Route: 048
     Dates: end: 20080401
  2. WELLBUTRIN [Concomitant]

REACTIONS (2)
  - MILIA [None]
  - RASH ERYTHEMATOUS [None]
